FAERS Safety Report 7682945-2 (Version None)
Quarter: 2011Q3

REPORT INFORMATION
  Report Type: 
  Country: None (occurrence: None)
  Receive Date: 20110815
  Receipt Date: 20110804
  Transmission Date: 20111222
  Serious: Yes (Other)
  Sender: FDA-Public Use
  Company Number: JP-ASTRAZENECA-2011SE47956

PATIENT
  Age: 0 Day
  Sex: Female

DRUGS (3)
  1. DEPAS [Concomitant]
     Route: 064
     Dates: end: 20110803
  2. SEROQUEL [Suspect]
     Route: 064
     Dates: end: 20110803
  3. ROHYPNOL [Concomitant]
     Route: 064
     Dates: end: 20110803

REACTIONS (2)
  - TIC [None]
  - DYSKINESIA [None]
